FAERS Safety Report 20950617 (Version 1)
Quarter: 2022Q2

REPORT INFORMATION
  Report Type: Spontaneous
  Country: US (occurrence: None)
  Receive Date: 20220613
  Receipt Date: 20220613
  Transmission Date: 20220721
  Serious: No
  Sender: FDA-Public Use
  Company Number: 2022A197651

PATIENT
  Age: 24967 Day
  Sex: Female

DRUGS (2)
  1. PULMICORT FLEXHALER [Suspect]
     Active Substance: BUDESONIDE
     Indication: Respiratory tract congestion
     Dosage: 90 MCG, 60 DOSE INHALER, BY INHALATION
     Route: 055
     Dates: start: 20220519
  2. PULMICORT FLEXHALER [Suspect]
     Active Substance: BUDESONIDE
     Indication: COVID-19
     Dosage: 90 MCG, 60 DOSE INHALER, BY INHALATION
     Route: 055
     Dates: start: 20220519

REACTIONS (4)
  - Sinus disorder [Unknown]
  - Device use issue [Unknown]
  - Device malfunction [Unknown]
  - Device malfunction [Unknown]

NARRATIVE: CASE EVENT DATE: 20220519
